FAERS Safety Report 21764336 (Version 1)
Quarter: 2022Q4

REPORT INFORMATION
  Report Type: Spontaneous
  Country: US (occurrence: US)
  Receive Date: 20221222
  Receipt Date: 20221222
  Transmission Date: 20230113
  Serious: No
  Sender: FDA-Public Use
  Company Number: US-ELI_LILLY_AND_COMPANY-US202212006613

PATIENT
  Age: 55 Year
  Sex: Male

DRUGS (3)
  1. HUMALOG [Suspect]
     Active Substance: INSULIN LISPRO
     Indication: Type 1 diabetes mellitus
     Dosage: UNK UNK, UNKNOWN
     Route: 065
  2. HUMALOG [Suspect]
     Active Substance: INSULIN LISPRO
     Indication: Type 1 diabetes mellitus
     Dosage: 70 U, DAILY
     Route: 058
     Dates: start: 20221119, end: 20221127
  3. HUMALOG [Suspect]
     Active Substance: INSULIN LISPRO
     Dosage: 70 U, DAILY
     Route: 058
     Dates: start: 20221127

REACTIONS (5)
  - COVID-19 [Recovered/Resolved]
  - Weight decreased [Unknown]
  - Tremor [Recovering/Resolving]
  - Blood glucose increased [Unknown]
  - Drug ineffective [Not Recovered/Not Resolved]

NARRATIVE: CASE EVENT DATE: 20220501
